FAERS Safety Report 17249571 (Version 3)
Quarter: 2020Q1

REPORT INFORMATION
  Report Type: Spontaneous
  Country: US (occurrence: US)
  Receive Date: 20200108
  Receipt Date: 20200320
  Transmission Date: 20200409
  Serious: Yes (Other)
  Sender: FDA-Public Use
  Company Number: US-NOVOPROD-705618

PATIENT
  Age: 62 Year
  Sex: Female

DRUGS (4)
  1. NOVOLIN R [Suspect]
     Active Substance: INSULIN HUMAN
     Dosage: UNK
     Route: 058
  2. NOVOLIN N [Suspect]
     Active Substance: INSULIN HUMAN
     Indication: TYPE 2 DIABETES MELLITUS
     Dosage: 18-21 UNITS OF EACH BREAKFAST, 15 UNITS LUNCH, 21-25 UNITS DINNER
     Route: 058
     Dates: start: 2006
  3. NOVOLIN N [Suspect]
     Active Substance: INSULIN HUMAN
     Dosage: UNK
     Route: 058
  4. NOVOLIN R [Suspect]
     Active Substance: INSULIN HUMAN
     Indication: TYPE 2 DIABETES MELLITUS
     Dosage: 18-21 UNITS OF EACH BREAKFAST, 15 UNITS LUNCH, 21-25 UNITS DINNER
     Route: 058
     Dates: start: 2006

REACTIONS (4)
  - Fall [Unknown]
  - Upper limb fracture [Recovered/Resolved]
  - Depression [Unknown]
  - Blood glucose increased [Recovered/Resolved]

NARRATIVE: CASE EVENT DATE: 20191023
